FAERS Safety Report 19692740 (Version 1)
Quarter: 2021Q3

REPORT INFORMATION
  Report Type: Spontaneous
  Country: RO (occurrence: RO)
  Receive Date: 20210812
  Receipt Date: 20210812
  Transmission Date: 20211014
  Serious: Yes (Hospitalization, Other)
  Sender: FDA-Public Use
  Company Number: RO-SA-2021SA266995

PATIENT
  Age: 3 Year
  Sex: Female

DRUGS (1)
  1. XYZALL [Suspect]
     Active Substance: LEVOCETIRIZINE DIHYDROCHLORIDE
     Indication: URTICARIA
     Dosage: 10 DROP, BID
     Route: 048
     Dates: start: 20210725, end: 20210728

REACTIONS (5)
  - Overdose [Unknown]
  - Myalgia [Recovered/Resolved]
  - Clostridium difficile infection [Unknown]
  - Tachycardia [Unknown]
  - Arthralgia [Recovered/Resolved]

NARRATIVE: CASE EVENT DATE: 202107
